FAERS Safety Report 10010112 (Version 1)
Quarter: 2014Q1

REPORT INFORMATION
  Report Type: Spontaneous
  Country: US (occurrence: US)
  Receive Date: 20140312
  Receipt Date: 20140312
  Transmission Date: 20141002
  Serious: Yes (Other)
  Sender: FDA-Public Use
  Company Number: US-INCYTE CORPORATION-2013IN001301

PATIENT
  Age: 89 Year
  Sex: Male

DRUGS (5)
  1. JAKAFI [Suspect]
     Indication: MYELOFIBROSIS
     Dosage: 10 MG IN AM AND 5 MG IN PM
     Route: 048
     Dates: start: 2013, end: 2013
  2. SYNTHROID [Concomitant]
  3. FLOMAX [Concomitant]
  4. DETROL [Concomitant]
  5. ZOLOFT [Concomitant]

REACTIONS (1)
  - Haemoglobin decreased [Unknown]
